FAERS Safety Report 9703331 (Version 2)
Quarter: 2016Q1

REPORT INFORMATION
  Report Type: Report from Study
  Country: US (occurrence: US)
  Receive Date: 20131122
  Receipt Date: 20160304
  Transmission Date: 20160526
  Serious: Yes (Other)
  Sender: FDA-Public Use
  Company Number: US-ROCHE-1304183

PATIENT
  Sex: Female

DRUGS (19)
  1. PANTOPRAZOLE SODIUM. [Concomitant]
     Active Substance: PANTOPRAZOLE SODIUM
     Dosage: ENTERIC COATED TAKE 1 PO DAILY
     Route: 048
  2. SLOW-MAG [Concomitant]
     Active Substance: MAGNESIUM CHLORIDE
     Dosage: AS DIRECTED
     Route: 048
  3. XELODA [Suspect]
     Active Substance: CAPECITABINE
     Dosage: 3 TABS 2 TIMES PER DAY FOR 14 DAYS AND 7DAYS
     Route: 048
     Dates: start: 20131031
  4. CELEXA (UNITED STATES) [Concomitant]
     Route: 048
  5. FENTANYL. [Concomitant]
     Active Substance: FENTANYL
     Dosage: 50MCG/HR, TAKE 1 PATCH TOPICALAS DIRECTED
     Route: 062
  6. KLOR-CON M20 [Concomitant]
     Active Substance: POTASSIUM CHLORIDE
     Dosage: PARTICLES/CRYSTALS
     Route: 048
  7. FOLIC ACID. [Concomitant]
     Active Substance: FOLIC ACID
     Dosage: TAKE 5 PO DAILY. INSTRUCTIONS:FOLIC ACID 5MG PO
     Route: 048
  8. EMLA [Concomitant]
     Active Substance: LIDOCAINE\PRILOCAINE
     Dosage: AS DIRECTED
     Route: 061
  9. ZOFRAN ODT [Concomitant]
     Active Substance: ONDANSETRON HYDROCHLORIDE
     Dosage: TAKE 1 ODT PRN
     Route: 048
  10. PROCHLORPERAZINE MALEATE. [Concomitant]
     Active Substance: PROCHLORPERAZINE MALEATE
     Indication: NAUSEA
     Dosage: PRN
     Route: 048
  11. XELODA [Suspect]
     Active Substance: CAPECITABINE
     Indication: BREAST CANCER
     Dosage: TAKE 3 (1000MG/M2)
     Route: 048
     Dates: start: 20131104
  12. IMODIUM A-D [Concomitant]
     Active Substance: LOPERAMIDE HYDROCHLORIDE
     Route: 048
  13. LASIX [Concomitant]
     Active Substance: FUROSEMIDE
     Dosage: MORNING
     Route: 048
  14. XANAX [Concomitant]
     Active Substance: ALPRAZOLAM
     Indication: ANXIETY
     Dosage: PRN
     Route: 048
  15. ZOMETA [Concomitant]
     Active Substance: ZOLEDRONIC ACID
     Route: 042
  16. MEGACE [Concomitant]
     Active Substance: MEGESTROL ACETATE
     Dosage: 400MG/10ML SUSPENSION TAKE 20ML
     Route: 048
  17. IXEMPRA [Concomitant]
     Active Substance: IXABEPILONE
  18. RITALIN [Concomitant]
     Active Substance: METHYLPHENIDATE HYDROCHLORIDE
     Dosage: TAKE 30MG PO QAM AND 20MG PO Q AFTERNOON
     Route: 048
  19. FASLODEX [Concomitant]
     Active Substance: FULVESTRANT
     Route: 065
     Dates: start: 20130903, end: 201310

REACTIONS (11)
  - Compression fracture [Unknown]
  - Disease progression [Unknown]
  - Pain [Unknown]
  - Fatigue [Unknown]
  - Muscular weakness [Unknown]
  - Hypoalbuminaemia [Unknown]
  - Decreased appetite [Unknown]
  - Iron deficiency [Unknown]
  - Anaemia [Unknown]
  - Dehydration [Unknown]
  - Hypotonia [Unknown]
